FAERS Safety Report 9199266 (Version 3)
Quarter: 2013Q3

REPORT INFORMATION
  Report Type: Spontaneous
  Country: US (occurrence: US)
  Receive Date: 20130329
  Receipt Date: 20130703
  Transmission Date: 20140515
  Serious: Yes (Other)
  Sender: FDA-Public Use
  Company Number: US-PFIZER INC-2013100854

PATIENT
  Age: 70 Year
  Sex: Female
  Weight: 49.89 kg

DRUGS (9)
  1. LYRICA [Suspect]
     Indication: NEURALGIA
     Dosage: 50 MG, 1X/DAY
     Route: 048
     Dates: start: 201302
  2. LYRICA [Interacting]
     Indication: NEURALGIA
     Dosage: 75 MG, 1X/DAY
     Route: 048
     Dates: start: 201303, end: 2013
  3. LYRICA [Interacting]
     Dosage: 75 MG, 1X/DAY
     Dates: start: 2013
  4. NEURONTIN [Suspect]
     Dosage: UNK
     Dates: start: 2013
  5. LIPITOR [Suspect]
     Dosage: UNK
     Dates: start: 2013
  6. GABAPENTIN [Interacting]
     Indication: NEURALGIA
     Dosage: 400 MG, UNK
     Dates: start: 2013, end: 2013
  7. COZAAR [Interacting]
     Indication: HYPERTENSION
     Dosage: UNK
  8. FLOVENT [Concomitant]
     Indication: LUNG DISORDER
     Dosage: UNK
  9. LIPITOR [Concomitant]
     Indication: BLOOD CHOLESTEROL INCREASED
     Dosage: UNK

REACTIONS (6)
  - Drug interaction [Unknown]
  - Hypotension [Unknown]
  - Rash [Not Recovered/Not Resolved]
  - Hyperkalaemia [Unknown]
  - Rash [Recovered/Resolved]
  - Dermatitis [Recovered/Resolved]
